FAERS Safety Report 7119965-2 (Version None)
Quarter: 2010Q4

REPORT INFORMATION
  Report Type: 
  Country: None (occurrence: None)
  Receive Date: 20101123
  Receipt Date: 20101115
  Transmission Date: 20110411
  Serious: Yes (Other)
  Sender: FDA-Public Use
  Company Number: US-ABBOTT-10P-163-0677935-00

PATIENT
  Sex: Male
  Weight: 127.12 kg

DRUGS (11)
  1. DEPAKOTE [Suspect]
     Indication: CONVULSION
     Dosage: 500MG IN AM AND 1000MG AT BEDTIME
     Dates: start: 20100207, end: 20100920
  2. DEPAKOTE [Suspect]
     Indication: AFFECTIVE DISORDER
     Dosage: 500MG IN AM AND 1000MG AT BEDTIME
     Dates: start: 20101008
  3. DEPAKOTE ER [Suspect]
     Indication: CONVULSION
     Dosage: 500MG IN AM AND 1000MG AT BEDTIME
     Dates: start: 20100920, end: 20101007
  4. SEROQUEL [Concomitant]
     Indication: BIPOLAR DISORDER
  5. INVEGA SUSTERNA [Concomitant]
     Indication: SCHIZOPHRENIA, PARANOID TYPE
     Dosage: LOADING DOSE AND ONCE A MONTH
     Route: 050
     Dates: start: 20101006
  6. HALDOL [Concomitant]
     Indication: SCHIZOPHRENIA, PARANOID TYPE
     Dosage: TITRATED DOWN
     Dates: start: 20100301, end: 20101010
  7. DOXEPIN HCL [Concomitant]
     Indication: SLEEP DISORDER
  8. NEXIUM [Concomitant]
     Indication: ABDOMINAL DISCOMFORT
  9. BENZODIAZEPINE MEDICATION [Concomitant]
     Indication: SCHIZOPHRENIA, PARANOID TYPE
     Dates: end: 20100920
  10. BENZODIAZEPINE MEDICATION [Concomitant]
     Indication: BIPOLAR DISORDER
  11. SINEQUAN [Concomitant]
     Indication: PRODUCT USED FOR UNKNOWN INDICATION
     Dosage: 75MG ;3 QAM, 3 QPM

REACTIONS (7)
  - CONTUSION [None]
  - DRUG EFFECT DECREASED [None]
  - FALL [None]
  - GRAND MAL CONVULSION [None]
  - HEAD INJURY [None]
  - INCORRECT DOSE ADMINISTERED [None]
  - WRONG DRUG ADMINISTERED [None]
